FAERS Safety Report 20022470 (Version 3)
Quarter: 2022Q1

REPORT INFORMATION
  Report Type: Other
  Country: DE (occurrence: DE)
  Receive Date: 20211102
  Receipt Date: 20220216
  Transmission Date: 20220423
  Serious: Yes (Hospitalization, Other)
  Sender: FDA-Public Use
  Company Number: DE-MACLEODS PHARMA UK LTD-MAC2021033186

PATIENT

DRUGS (7)
  1. CLOPIDOGREL [Suspect]
     Active Substance: CLOPIDOGREL BISULFATE
     Indication: Cerebrovascular accident prophylaxis
     Dosage: 75 MILLIGRAM, QD (PAUSED 1 WEEK BEFORE SURGERY, START DATE: JUN 2021), END DATE: 12-SEP-2021
     Route: 048
  2. CLOPIDOGREL [Suspect]
     Active Substance: CLOPIDOGREL BISULFATE
     Indication: Cerebral infarction
     Dosage: 75 MILLIGRAM, QD (ATTEMPT TO TAKE), START DATE: 29-SEP-2021
     Route: 048
  3. CLOPIDOGREL [Suspect]
     Active Substance: CLOPIDOGREL BISULFATE
     Indication: Dysarthria
     Dosage: 75 MILLIGRAM, QD (INTAKE CONTINUED), START DATE: 06-OCT-2021
     Route: 048
  4. CLOPIDOGREL [Suspect]
     Active Substance: CLOPIDOGREL BISULFATE
     Indication: Aphasia
  5. ATORVASTATIN [Concomitant]
     Active Substance: ATORVASTATIN
     Indication: Coronary artery disease
     Dosage: 80 MILLIGRAM, QD (0-0-1)
     Route: 065
  6. PROSTAGUTT [Concomitant]
     Indication: Product used for unknown indication
     Dosage: 160 MILLIGRAM, BID (1-0-1)
     Route: 065
  7. HERBALS\PLANTAGO OVATA SEED [Concomitant]
     Active Substance: HERBALS\PLANTAGO OVATA SEED
     Indication: Product used for unknown indication
     Dosage: 1 GRAM, QD (0-1-0)
     Route: 065

REACTIONS (8)
  - Thrombosis [Recovered/Resolved]
  - Wound closure [Recovered/Resolved]
  - Aphasia [Recovered/Resolved]
  - Language disorder [Recovered/Resolved]
  - Blood urine present [Recovered/Resolved]
  - Haematuria [Recovered/Resolved]
  - Pain [Not Recovered/Not Resolved]
  - Haematoma [Not Recovered/Not Resolved]

NARRATIVE: CASE EVENT DATE: 20210929
